FAERS Safety Report 16862095 (Version 1)
Quarter: 2019Q3

REPORT INFORMATION
  Report Type: Spontaneous
  Country: CH (occurrence: CH)
  Receive Date: 20190927
  Receipt Date: 20190927
  Transmission Date: 20191005
  Serious: No
  Sender: FDA-Public Use
  Company Number: CH-B.BRAUN MEDICAL INC.-2074993

PATIENT
  Age: 86 Year
  Sex: Male

DRUGS (1)
  1. DEXTROSE INJECTIONS USP 0264-7510-00 0264-7510-20 [Suspect]
     Active Substance: DEXTROSE

REACTIONS (2)
  - Cognitive disorder [None]
  - Product administration error [None]
